FAERS Safety Report 4418419-1 (Version None)
Quarter: 2004Q3

REPORT INFORMATION
  Report Type: 
  Country: None (occurrence: None)
  Receive Date: 20040809
  Receipt Date: 20040420
  Transmission Date: 20050211
  Serious: No
  Sender: FDA-Public Use
  Company Number: US-GLAXOSMITHKLINE-A0507682A

PATIENT
  Age: 59 Year
  Sex: Female

DRUGS (4)
  1. PAXIL [Suspect]
     Indication: PANIC DISORDER
     Dosage: 37.5MG PER DAY
     Route: 048
     Dates: start: 20040412
  2. XANAX [Concomitant]
  3. LISINOPRIL [Concomitant]
  4. PREMARIN [Concomitant]

REACTIONS (2)
  - NAUSEA [None]
  - NERVOUSNESS [None]
